FAERS Safety Report 9948048 (Version 1)
Quarter: 2014Q1

REPORT INFORMATION
  Report Type: Report from Study
  Country: US (occurrence: US)
  Receive Date: 20140303
  Receipt Date: 20140303
  Transmission Date: 20141002
  Serious: No
  Sender: FDA-Public Use
  Company Number: US-ABBVIE-13P-163-1061172-00

PATIENT
  Age: 46 Year
  Sex: Male

DRUGS (9)
  1. HUMIRA [Suspect]
     Indication: COLITIS ULCERATIVE
     Dosage: UNKNOWN
     Dates: start: 201301
  2. ASACOL [Concomitant]
     Indication: COLITIS
  3. FOLIC ACID [Concomitant]
     Indication: PRODUCT USED FOR UNKNOWN INDICATION
  4. VITAMIN D [Concomitant]
     Indication: PRODUCT USED FOR UNKNOWN INDICATION
  5. AMITRIPTYLINE [Concomitant]
     Indication: DEPRESSION
     Dosage: DAILY
  6. ZETIA [Concomitant]
     Indication: BLOOD CHOLESTEROL
     Dosage: LOWEST DOSE
  7. AMBIEN [Concomitant]
     Indication: INSOMNIA
  8. MELATONIN [Concomitant]
     Indication: INSOMNIA
  9. FLOMAX [Concomitant]
     Indication: URETHRITIS
     Dosage: 1 PILL A DAY

REACTIONS (3)
  - Muscle spasms [Unknown]
  - Myalgia [Unknown]
  - Myalgia [Unknown]
